FAERS Safety Report 4700816-8 (Version None)
Quarter: 2005Q2

REPORT INFORMATION
  Report Type: 
  Country: None (occurrence: None)
  Receive Date: 20050624
  Receipt Date: 20041129
  Transmission Date: 20051028
  Serious: Yes (Death)
  Sender: FDA-Public Use
  Company Number: 387695

PATIENT
  Age: 59 Year
  Sex: Female
  Weight: 38.6 kg

DRUGS (1)
  1. XELODA [Suspect]
     Indication: COLON CANCER
     Dosage: 1500 MG 2 PER DAY ORAL
     Route: 048
     Dates: start: 20041108, end: 20041110

REACTIONS (3)
  - COLON CANCER [None]
  - NAUSEA [None]
  - VOMITING [None]
